FAERS Safety Report 7417486 (Version 22)
Quarter: 2013Q1

REPORT INFORMATION
  Report Type: Spontaneous
  Country: US (occurrence: US)
  Receive Date: 20100611
  Receipt Date: 20130130
  Transmission Date: 20140127
  Serious: Yes (Death, Hospitalization, Other)
  Sender: FDA-Public Use
  Company Number: PHEH2010US03466

PATIENT
  Age: 58 None
  Sex: Female
  Weight: 69.84 kg

DRUGS (41)
  1. ZOMETA [Suspect]
     Indication: BONE DISORDER
     Dosage: 4 MG, QMO
     Dates: start: 200505, end: 20080616
  2. THALIDOMIDE [Suspect]
     Indication: PLASMA CELL MYELOMA
  3. KEPPRA [Concomitant]
  4. OXYCONTIN [Concomitant]
  5. PERCOCET [Concomitant]
  6. EFFEXOR [Concomitant]
  7. FLEXERIL [Concomitant]
  8. NEURONTIN [Concomitant]
  9. REVLIMID [Concomitant]
  10. COREG [Concomitant]
  11. HYDRALAZINE [Concomitant]
  12. CEFAZOLIN SODIUM [Concomitant]
     Dosage: 1000 MG, UNK
     Route: 042
  13. DEXAMETHASONE SODIUM PHOSPHATE [Concomitant]
     Dosage: 4 MG, UNK
  14. DROPERIDOL [Concomitant]
     Dosage: 5 MG, UNK
  15. ETOMIDATE [Concomitant]
     Dosage: 40 MG, UNK
     Route: 042
  16. METOPROLOL TARTRATE [Concomitant]
     Dosage: 5 MG, UNK
     Route: 042
  17. NEOSTIGMINE METHYLSULFATE [Concomitant]
     Dosage: 10 MG, UNK
  18. FENTANYL CITRATE [Concomitant]
     Dosage: 250 UG, UNK
  19. MIDAZOLAM HYDROCHLORIDE [Concomitant]
     Dosage: 2 MG, UNK
  20. CLINDAMYCIN [Concomitant]
     Dosage: 600 MG, UNK
  21. LASIX [Concomitant]
     Dosage: 40 MG, PRN
     Route: 048
  22. LISINOPRIL [Concomitant]
     Dosage: 10 MG, UNK
     Route: 048
  23. KEFLEX                                  /USA/ [Concomitant]
     Dosage: 500 MG, TID
     Route: 048
  24. LORTAB [Concomitant]
  25. LOVENOX [Concomitant]
     Dosage: 1 MG, QD
     Route: 048
  26. CARVEDILOL [Concomitant]
     Dosage: 3.125 MG, BID
     Route: 048
  27. DALTEPARIN [Concomitant]
     Dosage: 0.24 ML, Q12H
     Route: 058
  28. ACETYLCYSTEINE [Concomitant]
     Dosage: 600 MG, BID
     Route: 048
  29. METRONIDAZOLE [Concomitant]
     Dosage: 500 MG, Q8H
  30. ZOSYN [Concomitant]
  31. FAMOTIDINE [Concomitant]
     Route: 042
  32. VENLAFAXINE HYDROCHLORIDE [Concomitant]
     Dosage: 75 MG, QD
     Route: 048
  33. INSULIN [Concomitant]
  34. ZOLPIDEM [Concomitant]
     Dosage: 5 MG, QHS
     Route: 048
  35. ARANESP [Concomitant]
     Dosage: UNK UKN, QW3
  36. UNASYN [Concomitant]
  37. FLUDROCORTISONE [Concomitant]
  38. WARFARIN [Concomitant]
  39. CARVEDIOL [Concomitant]
  40. PERIDEX [Concomitant]
  41. VELCADE [Concomitant]

REACTIONS (100)
  - Death [Fatal]
  - Loss of consciousness [Unknown]
  - Fatigue [Recovering/Resolving]
  - Hypotension [Recovered/Resolved]
  - Syncope [Unknown]
  - Pneumonia [Unknown]
  - Compression fracture [Unknown]
  - Cardiac failure congestive [Unknown]
  - Dyspnoea [Unknown]
  - Osteonecrosis of jaw [Unknown]
  - Injury [Unknown]
  - Emotional distress [Unknown]
  - Pain [Unknown]
  - Anxiety [Unknown]
  - Infection [Unknown]
  - Deformity [Unknown]
  - Physical disability [Unknown]
  - Jaw fracture [Unknown]
  - Osteoradionecrosis [Unknown]
  - Exposed bone in jaw [Unknown]
  - Osteomyelitis acute [Unknown]
  - Mastication disorder [Unknown]
  - Osteolysis [Unknown]
  - Tooth loss [Unknown]
  - Breath odour [Unknown]
  - Dental caries [Unknown]
  - Loose tooth [Unknown]
  - Abscess jaw [Unknown]
  - Bone lesion [Unknown]
  - Atelectasis [Unknown]
  - Pulmonary oedema [Unknown]
  - Hypoxia [Unknown]
  - Rib fracture [Unknown]
  - Plasma cell myeloma [Unknown]
  - Plasmacytoma [Unknown]
  - Bone cancer [Unknown]
  - Cellulitis [Unknown]
  - Osteoarthritis [Unknown]
  - Gastrooesophageal reflux disease [Unknown]
  - Anaemia [Unknown]
  - Urinary tract infection [Recovered/Resolved]
  - Emphysema [Unknown]
  - Neuropathy peripheral [Unknown]
  - Synovial cyst [Unknown]
  - Local swelling [Unknown]
  - Left ventricular hypertrophy [Unknown]
  - Mitral valve incompetence [Unknown]
  - Tricuspid valve incompetence [Unknown]
  - Cardiomyopathy [Unknown]
  - Deep vein thrombosis [Unknown]
  - Diastolic dysfunction [Unknown]
  - Somnolence [Unknown]
  - Blood immunoglobulin G decreased [Unknown]
  - Convulsion [Unknown]
  - Dehydration [Unknown]
  - Renal failure chronic [Unknown]
  - Azotaemia [Unknown]
  - Hypertension [Unknown]
  - Tibia fracture [Unknown]
  - Nerve root compression [Unknown]
  - Haematoma [Unknown]
  - Peripheral vascular disorder [Unknown]
  - Nasal polyps [Unknown]
  - Chronic sinusitis [Unknown]
  - Intervertebral disc disorder [Unknown]
  - Back pain [Unknown]
  - Paraesthesia [Unknown]
  - Bone deformity [Unknown]
  - Essential thrombocythaemia [Unknown]
  - Clostridium difficile infection [Unknown]
  - Mental status changes [Unknown]
  - Meningioma [Unknown]
  - Respiratory failure [Unknown]
  - Thrombocytopenia [Unknown]
  - Bacterial infection [Unknown]
  - Lymphadenopathy [Unknown]
  - Skin ulcer [Unknown]
  - Haemangioma [Unknown]
  - Pleural effusion [Unknown]
  - Depression [Unknown]
  - Metastases to spine [Unknown]
  - Intervertebral disc protrusion [Unknown]
  - Musculoskeletal stiffness [Unknown]
  - Kyphosis [Unknown]
  - Sepsis [Unknown]
  - Bradycardia [Unknown]
  - Cushingoid [Unknown]
  - Clostridium difficile colitis [Recovering/Resolving]
  - Faecal incontinence [Unknown]
  - Bence Jones proteinuria [Unknown]
  - Renal atrophy [Unknown]
  - Abdominal pain [Unknown]
  - Osteosclerosis [Unknown]
  - Lumbar spinal stenosis [Unknown]
  - Coronary artery disease [Unknown]
  - Hypocalcaemia [Unknown]
  - Metabolic encephalopathy [Unknown]
  - Head injury [Unknown]
  - Neck injury [Unknown]
  - Intervertebral disc degeneration [Unknown]
